FAERS Safety Report 15470891 (Version 1)
Quarter: 2018Q4

REPORT INFORMATION
  Report Type: Spontaneous
  Country: DE (occurrence: DE)
  Receive Date: 20181005
  Receipt Date: 20181005
  Transmission Date: 20190205
  Serious: Yes (Hospitalization)
  Sender: FDA-Public Use
  Company Number: DE-SUN PHARMACEUTICAL INDUSTRIES LTD-2009RR-22243

PATIENT
  Age: 68 Year
  Sex: Male

DRUGS (22)
  1. GLUCOBAY [Concomitant]
     Active Substance: ACARBOSE
     Indication: TYPE 2 DIABETES MELLITUS
     Dosage: DAILY DOSE: 150 MG MILLIGRAM(S) EVERY DAY
     Route: 048
     Dates: start: 1996
  2. NEXAVAR [Suspect]
     Active Substance: SORAFENIB
     Dosage: 1 DF IN THE MORNING AND 2 DF IN THE EVENING
     Route: 048
     Dates: start: 20080709, end: 20080809
  3. METHIZOL [Concomitant]
     Active Substance: METHIMAZOLE
     Indication: HYPERTHYROIDISM
     Dosage: DAILY DOSE: 5 MG MILLIGRAM(S) EVERY DAY
     Route: 048
     Dates: start: 20080201
  4. PARACETAMOL [Concomitant]
     Active Substance: ACETAMINOPHEN
     Indication: PAIN
     Dosage: DAILY DOSE: 2000 MG MILLIGRAM(S) EVERY DAY
     Route: 048
     Dates: start: 20080807, end: 20080809
  5. AMLODIPINE [Suspect]
     Active Substance: AMLODIPINE BESYLATE
     Indication: HYPERTENSION
     Dosage: DAILY DOSE: 10 MG MILLIGRAM(S) EVERY DAY
     Route: 048
     Dates: start: 20080601
  6. CLOPIDOGREL [Concomitant]
     Active Substance: CLOPIDOGREL BISULFATE
     Indication: STENT PLACEMENT
     Dosage: DAILY DOSE: 75 MG MILLIGRAM(S) EVERY DAY
     Route: 048
     Dates: start: 20080301
  7. LOCOL [Concomitant]
     Indication: HYPERLIPIDAEMIA
     Dosage: DAILY DOSE: 80 MG MILLIGRAM(S) EVERY DAY
     Route: 048
     Dates: start: 20080601
  8. PENTALOG [Concomitant]
     Indication: CORONARY ARTERY DISEASE
     Dosage: 80 MG, TID
     Route: 048
     Dates: start: 20060601
  9. NEXAVAR [Suspect]
     Active Substance: SORAFENIB
     Dosage: DOSAGE FORM: 82
     Route: 048
     Dates: start: 20080910
  10. ALDACTONE [Concomitant]
     Active Substance: SPIRONOLACTONE
     Indication: CARDIAC FAILURE
     Dosage: DAILY DOSE: 25 MG MILLIGRAM(S) EVERY DAY
     Route: 048
     Dates: start: 20080601
  11. BELOC ZOK [Concomitant]
     Active Substance: METOPROLOL SUCCINATE
     Indication: ARRHYTHMIA
     Dosage: DAILY DOSE: 190 MG MILLIGRAM(S) EVERY DAY
     Route: 048
     Dates: start: 20001001
  12. CLOPIDOGREL [Concomitant]
     Active Substance: CLOPIDOGREL BISULFATE
     Indication: STENT PLACEMENT
  13. TOREM [Concomitant]
     Active Substance: TORSEMIDE
     Indication: CARDIAC FAILURE
     Dosage: DAILY DOSE: 5 MG MILLIGRAM(S) EVERY DAY
     Route: 048
     Dates: start: 20080601
  14. AMARYL [Concomitant]
     Active Substance: GLIMEPIRIDE
     Indication: TYPE 2 DIABETES MELLITUS
     Dosage: DAILY DOSE: 1 MG MILLIGRAM(S) EVERY DAY
     Route: 048
     Dates: start: 20080201
  15. ZOMETA [Suspect]
     Active Substance: ZOLEDRONIC ACID
     Indication: METASTASES TO BONE
     Dosage: DAILY DOSE: 4 MG MILLIGRAM(S) EVERY MONTH
     Route: 017
     Dates: start: 20080618, end: 20080716
  16. AMARYL [Concomitant]
     Active Substance: GLIMEPIRIDE
     Indication: TYPE 2 DIABETES MELLITUS
  17. TAMSULOSIN [Suspect]
     Active Substance: TAMSULOSIN
     Indication: BENIGN PROSTATIC HYPERPLASIA
     Dosage: 0.4 MG, QD
     Route: 048
  18. ACERBON [Suspect]
     Active Substance: LISINOPRIL
     Indication: HYPERTENSION
     Dosage: 20 MG IN THE MORNING, 10 MG IN THE EVENING
     Route: 048
     Dates: start: 1996, end: 20081027
  19. NEXAVAR [Suspect]
     Active Substance: SORAFENIB
     Indication: METASTATIC RENAL CELL CARCINOMA
     Dosage: 800 MG DAILY, DOSAGE FORM: 82, APPLICATION RESTARTED: 10-SEP-2008
     Route: 048
     Dates: start: 20080608, end: 20080809
  20. ASPIRIN. [Concomitant]
     Active Substance: ASPIRIN
     Indication: CORONARY ARTERY DISEASE
     Dosage: DAILY DOSE: 100 MG MILLIGRAM(S) EVERY DAY
     Route: 048
     Dates: start: 20001101
  21. DIGITOXIN [Concomitant]
     Active Substance: DIGITOXIN
     Indication: CARDIAC FAILURE
     Dosage: DAILY DOSE: 0.07 MG MILLIGRAM(S) EVERY DAY
     Route: 048
     Dates: start: 20080601
  22. PARACETAMOL [Concomitant]
     Active Substance: ACETAMINOPHEN
     Indication: PAIN

REACTIONS (19)
  - Angioedema [Unknown]
  - C-reactive protein increased [Unknown]
  - Mouth swelling [Unknown]
  - Swollen tongue [Recovered/Resolved]
  - Lip swelling [Recovered/Resolved]
  - Haemoglobin decreased [Unknown]
  - Speech disorder [Recovered/Resolved]
  - Red blood cell sedimentation rate increased [Unknown]
  - Dysphagia [Recovered/Resolved]
  - Blood sodium decreased [Unknown]
  - Oedema mouth [Unknown]
  - Oedema mucosal [Recovered/Resolved]
  - Gamma-glutamyltransferase increased [Unknown]
  - Tongue oedema [Recovered/Resolved]
  - Mouth swelling [Recovered/Resolved]
  - Dysphagia [Unknown]
  - Platelet count increased [Unknown]
  - Swollen tongue [Unknown]
  - Albumin urine present [Unknown]

NARRATIVE: CASE EVENT DATE: 20080810
